FAERS Safety Report 4856280-1 (Version None)
Quarter: 2005Q4

REPORT INFORMATION
  Report Type: 
  Country: None (occurrence: None)
  Receive Date: 20051219
  Receipt Date: 20051205
  Transmission Date: 20060501
  Serious: Yes (Hospitalization)
  Sender: FDA-Public Use
  Company Number: US-JNJFOC-20051201570

PATIENT
  Sex: Female

DRUGS (1)
  1. REMICADE [Suspect]
     Indication: CROHN'S DISEASE
     Dosage: HAD APPROXIMATELY 10 INFLIXIMAB TREATMENT
     Route: 042

REACTIONS (7)
  - ARTHRALGIA [None]
  - CONNECTIVE TISSUE DISORDER [None]
  - INFUSION RELATED REACTION [None]
  - LUNG DISORDER [None]
  - LUPUS-LIKE SYNDROME [None]
  - PERICARDITIS [None]
  - RASH [None]
